FAERS Safety Report 5139362-9 (Version None)
Quarter: 2006Q4

REPORT INFORMATION
  Report Type: 
  Country: None (occurrence: None)
  Receive Date: 20061024
  Receipt Date: 20061009
  Transmission Date: 20070319
  Serious: Yes (Life-Threatening, Hospitalization, Other)
  Sender: FDA-Public Use
  Company Number: 2006RL000141

PATIENT
  Age: 85 Year
  Sex: Female
  Weight: 89.3586 kg

DRUGS (23)
  1. RYTHMOL [Suspect]
     Indication: ATRIAL FIBRILLATION
     Dosage: SEE IMAGE
     Route: 048
     Dates: start: 20060404, end: 20060419
  2. RYTHMOL [Suspect]
     Indication: ATRIAL FIBRILLATION
     Dosage: SEE IMAGE
     Route: 048
     Dates: start: 20060420, end: 20060502
  3. RYTHMOL [Suspect]
     Indication: ATRIAL FIBRILLATION
     Dosage: SEE IMAGE
     Route: 048
     Dates: start: 20060502
  4. WARFARIN SODIUM [Suspect]
     Indication: ATRIAL FIBRILLATION
     Dosage: 5 MG; QD; PO
     Route: 048
     Dates: start: 20060322, end: 20060903
  5. COUMADIN [Suspect]
     Indication: DRUG USE FOR UNKNOWN INDICATION
     Dosage: SEE IMAGE
     Dates: start: 20060301
  6. BACTRIM [Suspect]
     Indication: DRUG USE FOR UNKNOWN INDICATION
  7. ALDACTONE [Suspect]
     Indication: CARDIAC FAILURE CONGESTIVE
     Dosage: SEE IMAGE
     Route: 048
     Dates: start: 19660103
  8. ALDACTONE [Suspect]
     Indication: HYPOKALAEMIA
     Dosage: SEE IMAGE
     Route: 048
     Dates: start: 19660103
  9. QUININE SULFATE [Concomitant]
  10. THYROID TAB [Concomitant]
  11. ASPIRIN [Concomitant]
  12. PREMARIN [Concomitant]
  13. PREDNISONE TAB [Concomitant]
  14. LASIX [Concomitant]
  15. GLIPIZIDE [Concomitant]
  16. ANCEF /00288502/ [Concomitant]
  17. CLINDAMYCIN [Concomitant]
  18. PREDNISONE TAB [Concomitant]
  19. LASIX [Concomitant]
  20. GLIPIZIDE [Concomitant]
  21. L-THYROXINE /00068001/ [Concomitant]
  22. SILVADENE [Concomitant]
  23. ATENOLOL [Concomitant]

REACTIONS (16)
  - ATRIAL FIBRILLATION [None]
  - BLOOD CREATININE INCREASED [None]
  - BLOOD ELECTROLYTES ABNORMAL [None]
  - BLOOD GLUCOSE DECREASED [None]
  - BLOOD SODIUM DECREASED [None]
  - BLOOD UREA INCREASED [None]
  - CARDIAC FAILURE CONGESTIVE [None]
  - CELLULITIS [None]
  - ECCHYMOSIS [None]
  - ESCHERICHIA INFECTION [None]
  - HYPERKALAEMIA [None]
  - INJURY [None]
  - INTERNATIONAL NORMALISED RATIO INCREASED [None]
  - PROTHROMBIN TIME PROLONGED [None]
  - SKIN ULCER [None]
  - WOUND INFECTION BACTERIAL [None]
